FAERS Safety Report 20608234 (Version 1)
Quarter: 2022Q1

REPORT INFORMATION
  Report Type: Spontaneous
  Country: US (occurrence: None)
  Receive Date: 20220317
  Receipt Date: 20220317
  Transmission Date: 20220424
  Serious: No
  Sender: FDA-Public Use
  Company Number: None

PATIENT
  Age: 73 Year
  Sex: Female
  Weight: 76.7 kg

DRUGS (9)
  1. CAPECITABINE [Suspect]
     Active Substance: CAPECITABINE
     Indication: Breast cancer
     Dosage: OTHER FREQUENCY : BID 7ON,7OF;?
     Route: 048
  2. CALCIUM CARBONATE [Concomitant]
     Active Substance: CALCIUM CARBONATE
  3. FASLODEX [Concomitant]
     Active Substance: FULVESTRANT
  4. IBUPROFEN [Concomitant]
     Active Substance: IBUPROFEN
  5. OSCAL [Concomitant]
     Active Substance: CALCIUM CARBONATE
  6. REMERON [Concomitant]
     Active Substance: MIRTAZAPINE
  7. SENNA [Concomitant]
     Active Substance: SENNA LEAF\SENNOSIDES\SENNOSIDES A AND B
  8. VITAMIN D [Concomitant]
     Active Substance: VITAMIN D NOS
  9. ZARXIO [Concomitant]
     Active Substance: FILGRASTIM-SNDZ

REACTIONS (1)
  - Disease progression [None]
